FAERS Safety Report 14992724 (Version 1)
Quarter: 2018Q2

REPORT INFORMATION
  Report Type: Spontaneous
  Country: CA (occurrence: CA)
  Receive Date: 20180609
  Receipt Date: 20180609
  Transmission Date: 20180711
  Serious: Yes (Other)
  Sender: FDA-Public Use
  Company Number: CA-ROCHE-2136039

PATIENT
  Sex: Female

DRUGS (1)
  1. RIVOTRIL [Suspect]
     Active Substance: CLONAZEPAM
     Indication: PRODUCT USED FOR UNKNOWN INDICATION
     Route: 065
     Dates: end: 20180104

REACTIONS (8)
  - Hypoaesthesia [Unknown]
  - Muscle spasms [Unknown]
  - Arthralgia [Unknown]
  - Ageusia [Unknown]
  - Anosmia [Unknown]
  - Insomnia [Unknown]
  - Deafness [Unknown]
  - Burning sensation [Unknown]
